FAERS Safety Report 14377844 (Version 1)
Quarter: 2018Q1

REPORT INFORMATION
  Report Type: Spontaneous
  Country: US (occurrence: US)
  Receive Date: 20180111
  Receipt Date: 20180111
  Transmission Date: 20180509
  Serious: Yes (Hospitalization, Other)
  Sender: FDA-Public Use
  Company Number: US-BRISTOL-MYERS SQUIBB COMPANY-BMS-2018-000593

PATIENT
  Age: 89 Year
  Sex: Female

DRUGS (4)
  1. REMODULIN [Suspect]
     Active Substance: TREPROSTINIL
     Indication: PRODUCT USED FOR UNKNOWN INDICATION
     Dosage: 0.04 ?G/KG, UNK
     Route: 058
     Dates: start: 20110215
  2. REMODULIN [Suspect]
     Active Substance: TREPROSTINIL
     Indication: PRODUCT USED FOR UNKNOWN INDICATION
     Dosage: 0.04 ?G/KG, UNK
     Route: 058
     Dates: start: 201603
  3. COUMADIN [Suspect]
     Active Substance: WARFARIN SODIUM
     Indication: PRODUCT USED FOR UNKNOWN INDICATION
     Route: 065
  4. REMODULIN [Suspect]
     Active Substance: TREPROSTINIL
     Indication: PULMONARY ARTERIAL HYPERTENSION
     Dosage: 0.04 ?G/KG, UNK
     Route: 058
     Dates: start: 20100626

REACTIONS (7)
  - Face injury [Unknown]
  - Mental status changes [Unknown]
  - Urinary tract infection [Unknown]
  - Nasal injury [Unknown]
  - Fall [Unknown]
  - Traumatic intracranial haemorrhage [Unknown]
  - Eye injury [Unknown]

NARRATIVE: CASE EVENT DATE: 20171205
